FAERS Safety Report 8942201 (Version 1)
Quarter: 2012Q4

REPORT INFORMATION
  Report Type: Spontaneous
  Country: US (occurrence: None)
  Receive Date: 20121129
  Receipt Date: 20121129
  Transmission Date: 20130627
  Serious: Yes (Life-Threatening, Hospitalization)
  Sender: FDA-Public Use
  Company Number: None

PATIENT
  Age: 52 Year
  Sex: Female
  Weight: 83.92 kg

DRUGS (1)
  1. CAMPATH [Suspect]
     Indication: MULTIPLE SCLEROSIS

REACTIONS (7)
  - Abdominal pain [None]
  - Loss of consciousness [None]
  - Hypotension [None]
  - Blood urine present [None]
  - Jaundice [None]
  - Haemoglobin decreased [None]
  - Antibody test positive [None]
